FAERS Safety Report 9678406 (Version 1)
Quarter: 2013Q4

REPORT INFORMATION
  Report Type: Spontaneous
  Country: US (occurrence: US)
  Receive Date: 20131108
  Receipt Date: 20131108
  Transmission Date: 20140711
  Serious: Yes (Hospitalization)
  Sender: FDA-Public Use
  Company Number: US-TEVA-443286USA

PATIENT
  Age: 71 Year
  Sex: Female

DRUGS (1)
  1. BACLOFEN [Suspect]
     Route: 048

REACTIONS (2)
  - Acute myocardial infarction [Unknown]
  - Withdrawal syndrome [Recovering/Resolving]
